FAERS Safety Report 21345373 (Version 2)
Quarter: 2022Q3

REPORT INFORMATION
  Report Type: Report from Study
  Country: CN (occurrence: CN)
  Receive Date: 20220916
  Receipt Date: 20220929
  Transmission Date: 20221026
  Serious: Yes (Hospitalization)
  Sender: FDA-Public Use
  Company Number: CN-PFIZER INC-PV202200059493

PATIENT
  Age: 54 Year
  Sex: Male
  Weight: 56 kg

DRUGS (12)
  1. MEROPENEM [Suspect]
     Active Substance: MEROPENEM
     Indication: Urinary tract infection
     Dosage: 2 G, Q8H
     Route: 042
     Dates: start: 20220906, end: 20220907
  2. TIGECYCLINE [Suspect]
     Active Substance: TIGECYCLINE
     Indication: Urinary tract infection
     Dosage: 50 MG, Q12H
     Route: 042
     Dates: start: 20220903, end: 20220905
  3. POLYMYXIN B [Suspect]
     Active Substance: POLYMYXIN B
     Indication: Urinary tract infection
     Dosage: 112000 IU (2MG/KG), FIRST DOSE
     Dates: start: 20220905, end: 20220905
  4. POLYMYXIN B [Suspect]
     Active Substance: POLYMYXIN B
     Dosage: 700000 IU, Q12H
     Route: 042
     Dates: start: 20220905, end: 20220906
  5. POLYMYXIN B [Suspect]
     Active Substance: POLYMYXIN B
     Dosage: 700000 IU
     Route: 042
     Dates: start: 20220906, end: 20220906
  6. FOSFOMYCIN [Suspect]
     Active Substance: FOSFOMYCIN
     Indication: Urinary tract infection
     Dosage: 8 G, Q12H
     Route: 042
     Dates: start: 20220904, end: 20220905
  7. METHYLPREDNISOLONE [Concomitant]
     Active Substance: METHYLPREDNISOLONE
     Indication: Rash
     Dosage: 16 MG, QD
     Route: 048
     Dates: start: 20220903, end: 20220906
  8. POTASSIUM CHLORIDE [Concomitant]
     Active Substance: POTASSIUM CHLORIDE
     Indication: Prophylaxis
     Dosage: 0.5 G, TID, SUSTAINED-RELEASE TABLETS
     Route: 048
     Dates: start: 20220904, end: 20220906
  9. TAMSULOSIN HYDROCHLORIDE [Concomitant]
     Active Substance: TAMSULOSIN HYDROCHLORIDE
     Indication: Benign prostatic hyperplasia
     Dosage: 0.2 MG, QN, SUSTAINED-RELEASE CAPSULES
     Route: 048
     Dates: start: 20220903, end: 20220925
  10. TOLTERODINE TARTRATE [Concomitant]
     Active Substance: TOLTERODINE TARTRATE
     Indication: Benign prostatic hyperplasia
     Dosage: 4 MG, BID, SUSTAINED-RELEASE TABLETS
     Route: 048
     Dates: start: 20220902, end: 20220925
  11. BIFIDOBACTERIUM LONGUM/ENTEROCOCCUS FAECALIS/LACTOBACILLUS ACIDOPHILUS [Concomitant]
     Indication: Gastrointestinal disorder
     Dosage: 630 MG, BID
     Route: 048
     Dates: start: 20220904, end: 20220925
  12. PHOSPHOLIPID [Concomitant]
     Active Substance: PHOSPHOLIPID
     Indication: Hepatobiliary disorder prophylaxis
     Dosage: 697.5 MG, BID, INJECTION
     Route: 042
     Dates: start: 20220905, end: 20220905

REACTIONS (1)
  - Large intestinal obstruction [Recovered/Resolved]

NARRATIVE: CASE EVENT DATE: 20220906
